FAERS Safety Report 7929087-6 (Version None)
Quarter: 2011Q4

REPORT INFORMATION
  Report Type: 
  Country: None (occurrence: None)
  Receive Date: 20111119
  Receipt Date: 20111114
  Transmission Date: 20120403
  Serious: Yes (Life-Threatening, Hospitalization)
  Sender: FDA-Public Use
  Company Number: CA-ASTRAZENECA-2011SE68746

PATIENT
  Age: 38 Year
  Sex: Male
  Weight: 68.5 kg

DRUGS (1)
  1. NEXIUM [Suspect]
     Route: 048

REACTIONS (1)
  - ATRIAL FIBRILLATION [None]
